FAERS Safety Report 23533227 (Version 4)
Quarter: 2024Q2

REPORT INFORMATION
  Report Type: Spontaneous
  Country: US (occurrence: US)
  Receive Date: 20240216
  Receipt Date: 20240604
  Transmission Date: 20240716
  Serious: Yes (Other)
  Sender: FDA-Public Use
  Company Number: US-BRISTOL-MYERS SQUIBB COMPANY-2024-022959

PATIENT
  Age: 64 Year
  Sex: Male

DRUGS (2)
  1. REVLIMID [Suspect]
     Active Substance: LENALIDOMIDE
     Indication: Follicular lymphoma
     Route: 048
     Dates: start: 202401
  2. REVLIMID [Suspect]
     Active Substance: LENALIDOMIDE
     Indication: Diffuse large B-cell lymphoma

REACTIONS (9)
  - Headache [Unknown]
  - Muscle spasms [Unknown]
  - Lethargy [Unknown]
  - Fatigue [Unknown]
  - Pyrexia [Recovered/Resolved]
  - Nausea [Unknown]
  - Hepatic enzyme increased [Unknown]
  - Brain fog [Unknown]
  - Tremor [Unknown]

NARRATIVE: CASE EVENT DATE: 20240201
